FAERS Safety Report 6349200-4 (Version None)
Quarter: 2009Q3

REPORT INFORMATION
  Report Type: 
  Country: None (occurrence: None)
  Receive Date: 20090911
  Receipt Date: 20090831
  Transmission Date: 20100115
  Serious: Yes (Hospitalization)
  Sender: FDA-Public Use
  Company Number: US-JNJFOC-20090604128

PATIENT
  Sex: Female
  Weight: 61.24 kg

DRUGS (9)
  1. REMICADE [Suspect]
     Indication: CROHN'S DISEASE
     Route: 042
     Dates: start: 20080317
  2. ADVAIR HFA [Concomitant]
     Dosage: 500/50
  3. SPIRIVA [Concomitant]
  4. ALBUTEROL [Concomitant]
     Route: 055
  5. SINGULAIR [Concomitant]
  6. PREDNISONE [Concomitant]
     Route: 048
  7. DONNATAL [Concomitant]
  8. DILTIAZEM [Concomitant]
     Indication: HYPERTENSION
     Route: 048
  9. LISINOPRIL [Concomitant]
     Indication: HYPERTENSION
     Route: 048

REACTIONS (5)
  - ABDOMINAL PAIN [None]
  - BRONCHITIS [None]
  - EMPHYSEMA [None]
  - PNEUMONIA [None]
  - RECTAL HAEMORRHAGE [None]
